FAERS Safety Report 7893119-4 (Version None)
Quarter: 2011Q4

REPORT INFORMATION
  Report Type: 
  Country: None (occurrence: None)
  Receive Date: 20111104
  Receipt Date: 20111101
  Transmission Date: 20120403
  Serious: Yes (Hospitalization, Other)
  Sender: FDA-Public Use
  Company Number: JP-BAYER-200914534BYL

PATIENT
  Age: 64 Year
  Sex: Male
  Weight: 53.5 kg

DRUGS (1)
  1. NEXAVAR [Suspect]
     Indication: RENAL CELL CARCINOMA
     Dosage: 400 MG (DAILY DOSE), , ORAL
     Route: 048
     Dates: start: 20091112, end: 20091117

REACTIONS (7)
  - PYREXIA [None]
  - OEDEMA [None]
  - PERICARDIAL EFFUSION [None]
  - NEPHROTIC SYNDROME [None]
  - PROTEINURIA [None]
  - ASCITES [None]
  - WEIGHT INCREASED [None]
